FAERS Safety Report 13247679 (Version 2)
Quarter: 2017Q1

REPORT INFORMATION
  Report Type: Spontaneous
  Country: FR (occurrence: FR)
  Receive Date: 20170217
  Receipt Date: 20170322
  Transmission Date: 20170428
  Serious: Yes (Hospitalization, Other)
  Sender: FDA-Public Use
  Company Number: FR-ASTRAZENECA-2017SE16790

PATIENT
  Age: 26945 Day
  Sex: Male

DRUGS (7)
  1. INEXIUM [Suspect]
     Active Substance: ESOMEPRAZOLE
     Route: 048
     Dates: start: 20170116
  2. REPAGLINIDE. [Suspect]
     Active Substance: REPAGLINIDE
     Indication: DIABETES MELLITUS
     Route: 065
     Dates: start: 201701
  3. TARGOCID [Suspect]
     Active Substance: TEICOPLANIN
     Indication: ENDOCARDITIS
     Route: 042
     Dates: start: 20170119, end: 20170202
  4. CEFTAROLINE [Suspect]
     Active Substance: CEFTAROLINE
     Route: 042
     Dates: start: 20170113
  5. CUBICIN [Suspect]
     Active Substance: DAPTOMYCIN
     Route: 042
     Dates: start: 20170105, end: 20170113
  6. HYDROXYZINE [Suspect]
     Active Substance: HYDROXYZINE HYDROCHLORIDE
     Indication: PRURITUS
     Route: 048
     Dates: start: 20170126, end: 20170201
  7. ZOPICLONE [Suspect]
     Active Substance: ZOPICLONE
     Indication: INSOMNIA
     Route: 048
     Dates: start: 20170121

REACTIONS (6)
  - Pancytopenia [Recovering/Resolving]
  - Pruritus [Unknown]
  - Duodenal ulcer [Unknown]
  - Insomnia [Unknown]
  - Duodenal ulcer haemorrhage [Unknown]
  - Melaena [Recovered/Resolved]

NARRATIVE: CASE EVENT DATE: 20170116
